FAERS Safety Report 22279031 (Version 1)
Quarter: 2023Q2

REPORT INFORMATION
  Report Type: Spontaneous
  Country: US (occurrence: US)
  Receive Date: 20230503
  Receipt Date: 20230503
  Transmission Date: 20230722
  Serious: No
  Sender: FDA-Public Use
  Company Number: US-PFIZER INC-202300173825

PATIENT
  Age: 70 Year
  Sex: Male
  Weight: 79.38 kg

DRUGS (3)
  1. PAXLOVID [Suspect]
     Active Substance: NIRMATRELVIR\RITONAVIR
     Indication: COVID-19 treatment
     Dosage: PF-07321332 300 MG]/[RITONAVIR 100 MG]; 2X/DAY;
     Route: 048
     Dates: start: 202212, end: 202212
  2. VITAMIN D3 [Concomitant]
     Active Substance: CHOLECALCIFEROL
  3. IRON [Concomitant]
     Active Substance: IRON

REACTIONS (7)
  - Therapeutic product effect incomplete [Unknown]
  - Arthralgia [Unknown]
  - Myalgia [Unknown]
  - Post-acute COVID-19 syndrome [Unknown]
  - Gait disturbance [Unknown]
  - Dysgraphia [Unknown]
  - Pain in extremity [Unknown]

NARRATIVE: CASE EVENT DATE: 20221201
